FAERS Safety Report 9468549 (Version 3)
Quarter: 2013Q3

REPORT INFORMATION
  Report Type: Spontaneous
  Country: US (occurrence: US)
  Receive Date: 20130821
  Receipt Date: 20130927
  Transmission Date: 20140515
  Serious: Yes (Disabling, Other)
  Sender: FDA-Public Use
  Company Number: US-GLAXOSMITHKLINE-A1037846A

PATIENT
  Age: 54 Year
  Sex: Female

DRUGS (2)
  1. ADVAIR [Suspect]
     Indication: BRONCHITIS
     Dosage: 1PUFF TWICE PER DAY
     Route: 055
  2. SINGULAIR [Concomitant]

REACTIONS (4)
  - Panic reaction [Unknown]
  - Drug ineffective [Unknown]
  - Off label use [Unknown]
  - Product quality issue [Unknown]
